FAERS Safety Report 13941164 (Version 4)
Quarter: 2018Q4

REPORT INFORMATION
  Report Type: Spontaneous
  Country: US (occurrence: US)
  Receive Date: 20170906
  Receipt Date: 20181025
  Transmission Date: 20190204
  Serious: Yes (Hospitalization, Other)
  Sender: FDA-Public Use
  Company Number: US-DSJP-DSU-2017-134977

PATIENT

DRUGS (3)
  1. BENICAR [Suspect]
     Active Substance: OLMESARTAN MEDOXOMIL
     Indication: PRODUCT USED FOR UNKNOWN INDICATION
     Dosage: 5 MG, ONCE DAILY
     Route: 048
     Dates: start: 20100524, end: 20171109
  2. BENICAR [Suspect]
     Active Substance: OLMESARTAN MEDOXOMIL
     Dosage: 20 MG, ONCE DAILY
     Route: 048
     Dates: start: 20100524, end: 20171109
  3. BENICAR [Suspect]
     Active Substance: OLMESARTAN MEDOXOMIL
     Dosage: 10 MG, ONCE DAILY
     Route: 048
     Dates: start: 20100524, end: 20171109

REACTIONS (4)
  - Weight decreased [Recovered/Resolved]
  - Haemorrhoids [Unknown]
  - Diverticulitis [Recovering/Resolving]
  - Large intestine polyp [Unknown]

NARRATIVE: CASE EVENT DATE: 20100913
